FAERS Safety Report 6231643-0 (Version None)
Quarter: 2009Q2

REPORT INFORMATION
  Report Type: 
  Country: None (occurrence: None)
  Receive Date: 20090616
  Receipt Date: 20090611
  Transmission Date: 20091009
  Serious: Yes (Other)
  Sender: FDA-Public Use
  Company Number: US-GENENTECH-281528

PATIENT
  Sex: Female
  Weight: 100 kg

DRUGS (6)
  1. HERCEPTIN [Suspect]
     Indication: BREAST CANCER
     Dosage: UNK
     Route: 042
     Dates: start: 20030101, end: 20040101
  2. HERCEPTIN [Suspect]
     Indication: BREAST CANCER METASTATIC
     Dosage: 900 MG, Q4W
     Route: 042
     Dates: start: 20070123
  3. CELEBREX [Concomitant]
     Indication: DRUG USE FOR UNKNOWN INDICATION
     Dosage: UNK
  4. DYAZIDE [Concomitant]
     Indication: DRUG USE FOR UNKNOWN INDICATION
     Dosage: UNK
  5. FASLODEX [Concomitant]
     Indication: BREAST CANCER RECURRENT
     Dosage: 250 MG, Q4W
     Dates: start: 20070123
  6. STEROIDS NOS [Concomitant]
     Indication: DRUG USE FOR UNKNOWN INDICATION
     Dosage: UNK

REACTIONS (3)
  - BREAST CANCER RECURRENT [None]
  - CARDIAC DISORDER [None]
  - SKIN DISORDER [None]
